FAERS Safety Report 8128311-7 (Version None)
Quarter: 2012Q1

REPORT INFORMATION
  Report Type: 
  Country: None (occurrence: None)
  Receive Date: 20120210
  Receipt Date: 20120201
  Transmission Date: 20120608
  Serious: Yes (Hospitalization)
  Sender: FDA-Public Use
  Company Number: US-GENZYME-POMP-1002004

PATIENT
  Sex: Female

DRUGS (3)
  1. MYOZYME [Suspect]
     Indication: GLYCOGEN STORAGE DISEASE TYPE II
     Dosage: UNK
     Route: 042
  2. METHOTREXATE [Concomitant]
     Indication: IMMUNOMODULATORY THERAPY
     Dosage: 0.4 MG/KG, UNK
     Dates: start: 20110908, end: 20111005
  3. RITUXIMAB [Concomitant]
     Indication: IMMUNOMODULATORY THERAPY
     Dosage: 375 MG, UNK
     Dates: start: 20110905, end: 20110926

REACTIONS (1)
  - INFUSION RELATED REACTION [None]
